FAERS Safety Report 5528002-2 (Version None)
Quarter: 2007Q4

REPORT INFORMATION
  Report Type: 
  Country: None (occurrence: None)
  Receive Date: 20071123
  Receipt Date: 20071119
  Transmission Date: 20080405
  Serious: Yes (Other)
  Sender: FDA-Public Use
  Company Number: 100#08#2007-04499

PATIENT
  Age: 41 Year
  Sex: Female

DRUGS (4)
  1. CARBAMAZEPINE [Suspect]
     Indication: DRUG USE FOR UNKNOWN INDICATION
  2. VALPROIC ACID [Suspect]
     Indication: DRUG USE FOR UNKNOWN INDICATION
  3. LITHIUM CARBONATE [Suspect]
     Indication: DRUG USE FOR UNKNOWN INDICATION
  4. SEROTONIN REUPTAKE INHIBITORS (SEROTONIN REUPTAKE INHIBITORS) [Suspect]
     Indication: DRUG USE FOR UNKNOWN INDICATION

REACTIONS (10)
  - ABNORMAL BEHAVIOUR [None]
  - BIPOLAR DISORDER [None]
  - EUPHORIC MOOD [None]
  - HYPOMANIA [None]
  - IRRITABILITY [None]
  - JUDGEMENT IMPAIRED [None]
  - LIBIDO INCREASED [None]
  - MANIA [None]
  - PARANOIA [None]
  - SLEEP DISORDER [None]
